FAERS Safety Report 10049941 (Version 1)
Quarter: 2014Q1

REPORT INFORMATION
  Report Type: Spontaneous
  Country: US (occurrence: None)
  Receive Date: 20140331
  Receipt Date: 20140331
  Transmission Date: 20141002
  Serious: Yes (Life-Threatening, Hospitalization)
  Sender: FDA-Public Use
  Company Number: None

PATIENT
  Age: 49 Year
  Sex: Male
  Weight: 92.5 kg

DRUGS (8)
  1. TESTOSTERONE [Suspect]
     Indication: BLOOD TESTOSTERONE DECREASED
     Route: 030
  2. HYDROCHLOROTHIAZIDE [Concomitant]
  3. DILTIAZEM [Concomitant]
  4. METOPROLOL SUCCINATE [Concomitant]
  5. CODEINE [Concomitant]
  6. DIAZEPAM [Concomitant]
  7. SILDENAFIL [Concomitant]
  8. ALBUTEROL [Concomitant]

REACTIONS (2)
  - Acute myocardial infarction [None]
  - Coronary artery disease [None]
